FAERS Safety Report 5793222-9 (Version None)
Quarter: 2008Q2

REPORT INFORMATION
  Report Type: 
  Country: None (occurrence: None)
  Receive Date: 20080627
  Receipt Date: 20080612
  Transmission Date: 20081010
  Serious: Yes (Hospitalization)
  Sender: FDA-Public Use
  Company Number: DE-ASTRAZENECA-2008PK01284

PATIENT
  Age: 87 Year
  Sex: Male
  Weight: 66 kg

DRUGS (10)
  1. SEROQUEL [Interacting]
     Route: 048
     Dates: start: 20080129, end: 20080325
  2. SEROQUEL [Interacting]
     Route: 048
     Dates: start: 20080326
  3. DURAGESIC-100 [Interacting]
     Route: 003
     Dates: start: 20080316
  4. LYRICA [Suspect]
     Route: 048
     Dates: start: 20080411, end: 20080413
  5. LYRICA [Suspect]
     Route: 048
     Dates: start: 20080414
  6. CYMBALTA [Suspect]
     Route: 048
     Dates: start: 20080501, end: 20080506
  7. TAMSULOSIN HCL [Concomitant]
     Route: 048
  8. ACTRAPHANE [Concomitant]
     Route: 058
  9. UNACID [Concomitant]
     Dates: start: 20080507, end: 20080511
  10. CIPROFLOXACIN HCL [Concomitant]
     Dates: start: 20080512, end: 20080521

REACTIONS (2)
  - DRUG INTERACTION [None]
  - PARKINSONISM [None]
